FAERS Safety Report 24093527 (Version 2)
Quarter: 2024Q3

REPORT INFORMATION
  Report Type: Spontaneous
  Country: AT (occurrence: AT)
  Receive Date: 20240715
  Receipt Date: 20240724
  Transmission Date: 20241017
  Serious: Yes (Other)
  Sender: NOVARTIS
  Company Number: AT-ROCHE-3368665

PATIENT
  Age: 35 Year
  Sex: Female
  Weight: 62 kg

DRUGS (141)
  1. DOCETAXEL [Suspect]
     Active Substance: DOCETAXEL\DOCETAXEL ANHYDROUS
     Indication: HER2 positive breast cancer
     Dosage: UNK UNK, QW, (TIW, 75 MG/M2)
     Route: 042
     Dates: start: 20170621, end: 20171115
  2. DOCETAXEL [Suspect]
     Active Substance: DOCETAXEL\DOCETAXEL ANHYDROUS
     Dosage: 25 MG, QD
     Route: 065
     Dates: start: 20200120, end: 20230630
  3. TYKERB [Suspect]
     Active Substance: LAPATINIB DITOSYLATE
     Indication: HER2 positive breast cancer
     Dosage: 250 MG, QD (MOST RECENT DOSE PRIOR TO AE 09/JUL/2021), TABLET
     Route: 048
     Dates: start: 20201028, end: 20210709
  4. TYKERB [Suspect]
     Active Substance: LAPATINIB DITOSYLATE
     Dosage: 250 MG, (0.25 DAY)
     Route: 048
  5. TYKERB [Suspect]
     Active Substance: LAPATINIB DITOSYLATE
     Dosage: 250 MG, (0.25 DAY)
     Route: 065
     Dates: start: 20230630
  6. FEMARA [Suspect]
     Active Substance: LETROZOLE
     Indication: HER2 positive breast cancer
     Dosage: 2.5 MG, QD (MOST RECENT DOSE PRIOR TO AE 20/JAN/2020)
     Route: 048
     Dates: start: 20180108, end: 20200120
  7. FEMARA [Suspect]
     Active Substance: LETROZOLE
     Dosage: 250 MG, QD (250 MG, QD (MOST RECENT DOSE PRIOR TO AE 09/JUL/2021))
     Route: 065
     Dates: start: 20201028, end: 20210709
  8. FEMARA [Suspect]
     Active Substance: LETROZOLE
     Dosage: 250 MG, QD (250 MG, QD (MOST RECENT DOSE PRIOR TO AE 09/JUL/2021)), TABLET
     Route: 065
     Dates: start: 20230630
  9. LETROZOLE [Suspect]
     Active Substance: LETROZOLE
     Indication: HER2 positive breast cancer
     Dosage: 2.5 MG, QD (MOST RECENT DOSE PRIOR TO AE 20 JAN 2020)
     Route: 048
     Dates: start: 20180108
  10. LETROZOLE [Suspect]
     Active Substance: LETROZOLE
     Dosage: 250 MG, QD
     Route: 065
     Dates: start: 20230630
  11. LETROZOLE [Suspect]
     Active Substance: LETROZOLE
     Dosage: 24 MG/KG, QW, (8 MG/KG, TIW)
     Route: 065
     Dates: start: 20170621, end: 20170621
  12. LETROZOLE [Suspect]
     Active Substance: LETROZOLE
     Dosage: 626.4 MG, QW, (208.8 MG, TIW)
     Route: 065
     Dates: start: 20200302
  13. LETROZOLE [Suspect]
     Active Substance: LETROZOLE
     Dosage: 1800 MG/KG, QW, (600 MG/KG, TIW)
     Route: 065
     Dates: start: 20220623
  14. LETROZOLE [Suspect]
     Active Substance: LETROZOLE
     Dosage: 250 MG, QD
     Route: 065
     Dates: start: 20200128, end: 20210709
  15. LETROZOLE [Suspect]
     Active Substance: LETROZOLE
     Dosage: 24 MG/KG, QW, (8 MG/KG, TIW)
     Route: 065
     Dates: start: 20170712, end: 20171115
  16. LETROZOLE [Suspect]
     Active Substance: LETROZOLE
     Dosage: 624 MG/KG, QW, (208 MG, TIW)
     Route: 042
     Dates: start: 20200120, end: 20200302
  17. LETROZOLE [Suspect]
     Active Substance: LETROZOLE
     Dosage: 711 MG/KG, QW, (237 MG, TIW)
     Route: 042
     Dates: start: 20200323, end: 20201006
  18. LETROZOLE [Suspect]
     Active Substance: LETROZOLE
     Dosage: 24 MG, QW, (8 MG/KG, TIW )
     Route: 065
     Dates: start: 20180108, end: 20190127
  19. TAXOTERE [Suspect]
     Active Substance: DOCETAXEL
     Indication: HER2 positive breast cancer
     Dosage: 75 MG/M2, TIW (MOST RECENT DOSE PRIOR TO AE 15/NOV/2017)
     Route: 042
     Dates: start: 20170621, end: 20171115
  20. TAXOTERE [Suspect]
     Active Substance: DOCETAXEL
     Dosage: 75 MG/M2, TIW (MOST RECENT DOSE PRIOR TO AE 15 NOV 2017) (IV DRIP)
     Route: 042
     Dates: start: 20170621, end: 20171115
  21. TAXOTERE [Suspect]
     Active Substance: DOCETAXEL
     Dosage: 75 MG/M2, TIW (MOST RECENT DOSE PRIOR TO AE 15/NOV/2017)
     Route: 042
     Dates: start: 20200120, end: 20230630
  22. CAPECITABINE [Suspect]
     Active Substance: CAPECITABINE
     Indication: HER2 positive breast cancer
     Dosage: 1000 MG, (0.5 MG/DAY)
     Route: 048
     Dates: start: 20220623, end: 20230612
  23. GOSERELIN [Suspect]
     Active Substance: GOSERELIN
     Indication: HER2 positive breast cancer
     Dosage: 3.6 MG, QMO
     Route: 058
  24. GOSERELIN [Suspect]
     Active Substance: GOSERELIN
     Dosage: 3.6 MG, Q4W
     Route: 058
     Dates: start: 20180108
  25. GOSERELIN [Suspect]
     Active Substance: GOSERELIN
     Dosage: UNK (ONGOING = CHECKED)
     Route: 065
     Dates: start: 20180129
  26. HERCEPTIN [Suspect]
     Active Substance: TRASTUZUMAB
     Indication: HER2 positive breast cancer
     Dosage: 8 MG/KG, Q3W
     Route: 042
     Dates: start: 20170621, end: 20170621
  27. HERCEPTIN [Suspect]
     Active Substance: TRASTUZUMAB
     Dosage: 6 MG/KG, Q3W
     Route: 042
     Dates: start: 20170712, end: 20171115
  28. HERCEPTIN [Suspect]
     Active Substance: TRASTUZUMAB
     Dosage: 6 MG/KG, Q3W
     Route: 042
     Dates: start: 20180108, end: 20191127
  29. HERCEPTIN [Suspect]
     Active Substance: TRASTUZUMAB
     Dosage: 1260 MG, QD, (420 MG, TID)
     Route: 042
     Dates: start: 20180108, end: 20191127
  30. HERCEPTIN [Suspect]
     Active Substance: TRASTUZUMAB
     Dosage: 600 MG/KG, Q3W
     Route: 065
     Dates: start: 20201028, end: 20210709
  31. HERCEPTIN [Suspect]
     Active Substance: TRASTUZUMAB
     Dosage: 600 MG, Q3W
     Route: 058
     Dates: start: 20201028, end: 20210709
  32. HERCEPTIN [Suspect]
     Active Substance: TRASTUZUMAB
     Dosage: 600 MG, Q3W
     Route: 058
     Dates: start: 20220623
  33. HERCEPTIN [Suspect]
     Active Substance: TRASTUZUMAB
     Dosage: 24 MG/KG, QW, 8 MG/KG, TIW (MOST RECENT DOSE PRIOR TO THE EVENT: 23 JUN 2022)
     Route: 042
     Dates: start: 20170621, end: 20170621
  34. HERCEPTIN [Suspect]
     Active Substance: TRASTUZUMAB
     Dosage: 1800 MG/KG, QW, (600 MG/KG, TIW)
     Route: 065
     Dates: start: 20220623
  35. HERCEPTIN [Suspect]
     Active Substance: TRASTUZUMAB
     Dosage: 18 MG/KG, QW, (6 MG/KG, TIW)
     Route: 042
     Dates: start: 20180108, end: 20191127
  36. HERCEPTIN [Suspect]
     Active Substance: TRASTUZUMAB
     Dosage: 18 MG/KG, QW, (6 MG/KG, TIW)
     Route: 042
     Dates: start: 20170712, end: 20171115
  37. HERCEPTIN [Suspect]
     Active Substance: TRASTUZUMAB
     Dosage: 1800 MG/KG, QW, (600 MG/KG, TIW)
     Route: 065
     Dates: start: 20201028, end: 20210709
  38. TUCATINIB [Suspect]
     Active Substance: TUCATINIB
     Indication: HER2 positive breast cancer
     Dosage: 840 MG, Q3W, (MOST RECENT DOSE PRIOR TO THE EVENT: 8/JAN/2028)
     Route: 065
     Dates: start: 20170621
  39. TUCATINIB [Suspect]
     Active Substance: TUCATINIB
     Dosage: 420 MG, Q3W,  (MOST RECENT DOSE PRIOR TO THE EVENT: 8/JAN/2028)
     Route: 065
     Dates: start: 20170712, end: 20171115
  40. TUCATINIB [Suspect]
     Active Substance: TUCATINIB
     Dosage: 420 MG, Q3W, (MOST RECENT DOSE PRIOR TO THE EVENT: 8/JAN/2028)
     Route: 065
     Dates: start: 20180108, end: 20191127
  41. TUCATINIB [Suspect]
     Active Substance: TUCATINIB
     Dosage: 150 MG, BID (MOST RECENT DOSE OF TUCTINIB: 12/JUN/2023)
     Route: 048
     Dates: start: 20220623, end: 20230612
  42. TUCATINIB [Suspect]
     Active Substance: TUCATINIB
     Dosage: 2520 MG, QW, (840 MG, TIW)
     Route: 065
     Dates: start: 20170621
  43. TUCATINIB [Suspect]
     Active Substance: TUCATINIB
     Dosage: 1260 MG, QW, (420 MG, TIW)
     Route: 065
     Dates: start: 20170712, end: 20171115
  44. TUCATINIB [Suspect]
     Active Substance: TUCATINIB
     Dosage: 1260 MG, QW, (420 MG, TIW)
     Route: 065
     Dates: start: 20180108, end: 20191127
  45. PERJETA [Suspect]
     Active Substance: PERTUZUMAB
     Indication: HER2 positive breast cancer
     Dosage: 840 MG, Q3W
     Route: 042
     Dates: start: 20170621, end: 20170621
  46. PERJETA [Suspect]
     Active Substance: PERTUZUMAB
     Dosage: 420 MG, Q3W
     Route: 042
     Dates: start: 20170712, end: 20171115
  47. PERJETA [Suspect]
     Active Substance: PERTUZUMAB
     Dosage: 420 MG, Q3W
     Route: 042
     Dates: start: 20180108, end: 20191127
  48. PERJETA [Suspect]
     Active Substance: PERTUZUMAB
     Dosage: 2520 MG, QW, 840 MG, TIW (MOST RECENT DOSE PRIOR TO THE EVENT: 08 JAN 2028)
     Route: 042
     Dates: start: 20170621, end: 20170621
  49. PERJETA [Suspect]
     Active Substance: PERTUZUMAB
     Dosage: 1260 MG, QW, (420 MG, TIW)
     Route: 042
     Dates: start: 20180712, end: 20191127
  50. PERJETA [Suspect]
     Active Substance: PERTUZUMAB
     Dosage: 1260 MG, QW, (420 MG, TIW)
     Route: 042
     Dates: start: 20180108, end: 20191127
  51. AROMASIN [Suspect]
     Active Substance: EXEMESTANE
     Indication: HER2 positive breast cancer
     Dosage: 25 MG, QD (MOST RECENT DOSE OF EXEMESTANE: 30/JUN/2023
     Route: 048
     Dates: start: 20200120, end: 20230630
  52. KADCYLA [Suspect]
     Active Substance: ADO-TRASTUZUMAB EMTANSINE
     Indication: HER2 positive breast cancer
     Dosage: 8 MG/KG, Q3W, (MOST RECENT DOSE PRIOR TO THE EVENT: 23/JUN/2022)
     Route: 065
     Dates: start: 20170621, end: 20170621
  53. KADCYLA [Suspect]
     Active Substance: ADO-TRASTUZUMAB EMTANSINE
     Dosage: 8 MG/KG, Q3W,  (MOST RECENT DOSE PRIOR TO THE EVENT: 23/JUN/2022)
     Route: 065
     Dates: start: 20170712, end: 20171115
  54. KADCYLA [Suspect]
     Active Substance: ADO-TRASTUZUMAB EMTANSINE
     Dosage: 8 MG/KG, Q3W, (MOST RECENT DOSE PRIOR TO THE EVENT: 23/JUN/2022)
     Route: 065
     Dates: start: 20180108, end: 20190127
  55. KADCYLA [Suspect]
     Active Substance: ADO-TRASTUZUMAB EMTANSINE
     Dosage: 600 MG/KG, TIW, (MOST RECENT DOSE PRIOR TO THE EVENT: 23/JUN/2022)
     Route: 065
     Dates: start: 20220623
  56. KADCYLA [Suspect]
     Active Substance: ADO-TRASTUZUMAB EMTANSINE
     Dosage: 208.8 MG, Q3W
     Route: 042
     Dates: start: 20200120, end: 20200302
  57. KADCYLA [Suspect]
     Active Substance: ADO-TRASTUZUMAB EMTANSINE
     Dosage: 208 MG, Q3W
     Route: 042
     Dates: start: 20200120, end: 20200302
  58. KADCYLA [Suspect]
     Active Substance: ADO-TRASTUZUMAB EMTANSINE
     Dosage: 237 MG, Q3W
     Route: 042
     Dates: start: 20200323, end: 20201006
  59. KADCYLA [Suspect]
     Active Substance: ADO-TRASTUZUMAB EMTANSINE
     Dosage: 624 MG, QW, (208 MG, TIW)
     Route: 042
     Dates: start: 20200120, end: 20200302
  60. KADCYLA [Suspect]
     Active Substance: ADO-TRASTUZUMAB EMTANSINE
     Dosage: 711 MG, QW, (237 MG, TIW)
     Route: 042
     Dates: start: 20200323, end: 20201006
  61. KADCYLA [Suspect]
     Active Substance: ADO-TRASTUZUMAB EMTANSINE
     Dosage: 24 MG/KG, QW, (8 MG/KG, TIW)
     Route: 065
     Dates: start: 20180108, end: 20190127
  62. KADCYLA [Suspect]
     Active Substance: ADO-TRASTUZUMAB EMTANSINE
     Dosage: 626.4 MG, QW, (208.8 MG, TIW)
     Route: 042
     Dates: start: 20200120, end: 20200302
  63. KADCYLA [Suspect]
     Active Substance: ADO-TRASTUZUMAB EMTANSINE
     Dosage: 24 MG/KG, QW, (8 MG/KG, TIW)
     Route: 042
     Dates: start: 20170621, end: 20170621
  64. KADCYLA [Suspect]
     Active Substance: ADO-TRASTUZUMAB EMTANSINE
     Dosage: 1800 MG/KG, QW, (600 MG/KG, TIW)
     Route: 042
     Dates: start: 20220623
  65. KADCYLA [Suspect]
     Active Substance: ADO-TRASTUZUMAB EMTANSINE
     Dosage: 24 MG/KG, QW, (8 MG/KG, TIW)
     Route: 065
     Dates: start: 20170712, end: 20171115
  66. ARIMIDEX [Suspect]
     Active Substance: ANASTROZOLE
     Indication: Product used for unknown indication
     Dosage: 1 MG, QD
     Route: 048
     Dates: start: 20230630
  67. DENOSUMAB [Suspect]
     Active Substance: DENOSUMAB
     Indication: HER2 positive breast cancer
     Dosage: 120 MG, Q4W
     Route: 058
     Dates: start: 20170621
  68. GOSERELIN ACETATE [Suspect]
     Active Substance: GOSERELIN ACETATE
     Indication: HER2 positive breast cancer
     Dosage: 3.6 MG, Q4W
     Route: 058
     Dates: start: 20180108
  69. EXEMESTANE [Suspect]
     Active Substance: EXEMESTANE
     Indication: HER2 positive breast cancer
     Dosage: 25 MG, QD
     Route: 048
     Dates: start: 20200120
  70. CAPECITABINE [Suspect]
     Active Substance: CAPECITABINE
     Indication: HER2 positive breast cancer
     Dosage: 1000 MG, BID (0.5 DAY)
     Route: 048
     Dates: start: 20220623, end: 20230612
  71. CAPECITABINE [Suspect]
     Active Substance: CAPECITABINE
     Dosage: 1000 MG
     Route: 048
     Dates: start: 20220623, end: 20230612
  72. XGEVA [Suspect]
     Active Substance: DENOSUMAB
     Indication: HER2 positive breast cancer
     Dosage: UNK
     Route: 065
     Dates: start: 20170621
  73. XGEVA [Suspect]
     Active Substance: DENOSUMAB
     Indication: Product used for unknown indication
     Dosage: 3.6 MG, Q4W
     Route: 065
     Dates: start: 20180129
  74. ESOMEPRAZOLE [Concomitant]
     Active Substance: ESOMEPRAZOLE
     Indication: Product used for unknown indication
     Dosage: UNK
     Route: 065
     Dates: start: 20170621
  75. ESOMEPRAZOLE [Concomitant]
     Active Substance: ESOMEPRAZOLE
     Dosage: UNK
     Route: 048
     Dates: start: 20230508, end: 20230515
  76. CLOBAZAM [Concomitant]
     Active Substance: CLOBAZAM
     Indication: Epilepsy
     Dosage: UNK
     Route: 065
     Dates: start: 20230508
  77. CLOBAZAM [Concomitant]
     Active Substance: CLOBAZAM
     Dosage: ONGOING = CHECKED
     Route: 065
     Dates: start: 20230508
  78. CLOBAZAM [Concomitant]
     Active Substance: CLOBAZAM
     Dosage: ONGOING = CHECKED
     Route: 065
     Dates: start: 20230508
  79. CLOBAZAM [Concomitant]
     Active Substance: CLOBAZAM
     Dosage: ONGOING = CHECKED
     Route: 065
     Dates: start: 20230508
  80. CLOBAZAM [Concomitant]
     Active Substance: CLOBAZAM
     Dosage: ONGOING = CHECKED
     Route: 065
     Dates: start: 20230508
  81. LEVETIRACETAM [Concomitant]
     Active Substance: LEVETIRACETAM
     Indication: Product used for unknown indication
     Dosage: ONGOING = CHECKED
     Route: 065
     Dates: start: 20200102
  82. LEVETIRACETAM [Concomitant]
     Active Substance: LEVETIRACETAM
     Dosage: UNK
     Route: 048
     Dates: start: 20230508, end: 20230515
  83. LEVETIRACETAM [Concomitant]
     Active Substance: LEVETIRACETAM
     Dosage: UNK
     Route: 065
     Dates: start: 20200102
  84. LEVETIRACETAM [Concomitant]
     Active Substance: LEVETIRACETAM
     Dosage: ONGOING = CHECKED
     Route: 065
     Dates: start: 20200102
  85. LEVETIRACETAM [Concomitant]
     Active Substance: LEVETIRACETAM
     Dosage: ONGOING = CHECKED
     Route: 065
     Dates: start: 20200102
  86. LEVETIRACETAM [Concomitant]
     Active Substance: LEVETIRACETAM
     Dosage: ONGOING = CHECKED
     Route: 065
     Dates: start: 20200102
  87. APREPITANT [Concomitant]
     Active Substance: APREPITANT
     Indication: Product used for unknown indication
     Dosage: UNK
     Route: 065
     Dates: start: 20210812
  88. NOVALGIN [Concomitant]
     Indication: Product used for unknown indication
     Dosage: UNK
     Route: 065
     Dates: start: 20180515
  89. NOVALGIN [Concomitant]
     Dosage: UNK
     Route: 065
     Dates: start: 20230508, end: 20230515
  90. NOVALGIN [Concomitant]
     Dosage: UNK
     Route: 048
     Dates: start: 20230508, end: 20230515
  91. ESOMEPRAZOLE [Concomitant]
     Active Substance: ESOMEPRAZOLE
     Indication: Product used for unknown indication
     Dosage: UNK (ONGOING = CHECKED)
     Route: 065
     Dates: start: 20191230
  92. ESOMEPRAZOLE [Concomitant]
     Active Substance: ESOMEPRAZOLE
     Dosage: UNK
     Route: 065
     Dates: start: 20230515
  93. UNASYN [Concomitant]
     Active Substance: AMPICILLIN SODIUM\SULBACTAM SODIUM
     Indication: Pneumonia
     Dosage: UNK
     Route: 065
     Dates: start: 20230507, end: 20230508
  94. UNASYN [Concomitant]
     Active Substance: AMPICILLIN SODIUM\SULBACTAM SODIUM
     Dosage: UNK
     Route: 048
     Dates: start: 20230508, end: 20230515
  95. LOPERAMIDE HYDROCHLORIDE [Concomitant]
     Active Substance: LOPERAMIDE HYDROCHLORIDE
     Indication: Product used for unknown indication
     Dosage: UNK
     Route: 065
     Dates: start: 20201028
  96. LOPERAMIDE HYDROCHLORIDE [Concomitant]
     Active Substance: LOPERAMIDE HYDROCHLORIDE
     Dosage: UNK
     Route: 048
     Dates: start: 20230508, end: 20230515
  97. DEXAMETHASONE [Concomitant]
     Active Substance: DEXAMETHASONE
     Indication: Syncope
     Dosage: UNK
     Route: 065
     Dates: start: 20201111
  98. DEXAMETHASONE [Concomitant]
     Active Substance: DEXAMETHASONE
     Dosage: UNK
     Route: 065
     Dates: start: 20230509
  99. DEXAMETHASONE [Concomitant]
     Active Substance: DEXAMETHASONE
     Dosage: UNK
     Route: 065
  100. AMOXICILLIN AND CLAVULANATE POTASSIUM [Concomitant]
     Active Substance: AMOXICILLIN\CLAVULANATE POTASSIUM
     Indication: Pneumonia
     Dosage: UNK
     Route: 065
     Dates: start: 20230508, end: 20230515
  101. AMOXICILLIN AND CLAVULANATE POTASSIUM [Concomitant]
     Active Substance: AMOXICILLIN\CLAVULANATE POTASSIUM
     Dosage: UNK
     Route: 065
     Dates: start: 20230509
  102. AMOXICILLIN AND CLAVULANATE POTASSIUM [Concomitant]
     Active Substance: AMOXICILLIN\CLAVULANATE POTASSIUM
     Dosage: UNK
     Route: 065
  103. KETOPROFEN [Concomitant]
     Active Substance: KETOPROFEN
     Indication: Product used for unknown indication
     Dosage: UNK
     Route: 065
     Dates: start: 20230508, end: 20230515
  104. PROPOFOL [Concomitant]
     Active Substance: PROPOFOL
     Indication: Product used for unknown indication
     Dosage: UNK
     Route: 065
  105. PROPOFOL [Concomitant]
     Active Substance: PROPOFOL
     Dosage: UNK
     Route: 065
  106. FENTANYL [Concomitant]
     Active Substance: FENTANYL\FENTANYL CITRATE
     Indication: Product used for unknown indication
     Dosage: UNK
     Route: 065
  107. FENTANYL [Concomitant]
     Active Substance: FENTANYL\FENTANYL CITRATE
     Route: 065
  108. ZOFRAN [Concomitant]
     Active Substance: ONDANSETRON HYDROCHLORIDE
     Indication: Product used for unknown indication
     Dosage: UNK
     Route: 048
     Dates: start: 20230508, end: 20230515
  109. DEXABENE [Concomitant]
     Indication: Product used for unknown indication
     Dosage: UNK
     Route: 048
     Dates: start: 20230508, end: 20230515
  110. DEXABENE [Concomitant]
     Dosage: UNK
     Route: 065
  111. DEXABENE [Concomitant]
     Dosage: UNK
     Route: 065
  112. DEXABENE [Concomitant]
     Dosage: UNK
     Route: 065
  113. DEXABENE [Concomitant]
     Dosage: UNK
     Route: 065
  114. DIPHENHYDRAMINE HYDROCHLORIDE [Concomitant]
     Active Substance: DIPHENHYDRAMINE HYDROCHLORIDE
     Indication: Product used for unknown indication
     Dosage: UNK
     Route: 048
     Dates: start: 20230508, end: 20230515
  115. KETANEST [Concomitant]
     Indication: Product used for unknown indication
     Dosage: UNK
     Route: 065
  116. LIPEGFILGRASTIM [Concomitant]
     Active Substance: LIPEGFILGRASTIM
     Indication: Product used for unknown indication
     Dosage: UNK
     Route: 048
     Dates: start: 20230508, end: 20230515
  117. LIPEGFILGRASTIM [Concomitant]
     Active Substance: LIPEGFILGRASTIM
     Dosage: UNK
     Route: 065
  118. EMEND [Concomitant]
     Active Substance: APREPITANT
     Indication: Product used for unknown indication
     Dosage: UNK
     Route: 065
     Dates: start: 20210812
  119. FENTANYL [Concomitant]
     Active Substance: FENTANYL\FENTANYL CITRATE
     Indication: Product used for unknown indication
     Dosage: UNK
     Route: 065
  120. FENTANYL [Concomitant]
     Active Substance: FENTANYL\FENTANYL CITRATE
     Dosage: UNK
     Route: 065
  121. AMOXICILLIN\CLAVULANATE POTASSIUM [Concomitant]
     Active Substance: AMOXICILLIN\CLAVULANATE POTASSIUM
     Indication: Pneumonia
     Dosage: UNK
     Route: 065
     Dates: start: 20230508, end: 20230515
  122. LOPERAMIDE HYDROCHLORIDE [Concomitant]
     Active Substance: LOPERAMIDE HYDROCHLORIDE
     Indication: Product used for unknown indication
     Dosage: UNK
     Route: 065
  123. LOPERAMIDE HYDROCHLORIDE [Concomitant]
     Active Substance: LOPERAMIDE HYDROCHLORIDE
     Dosage: UNK
     Route: 065
  124. ASCORBIC ACID\CALCIUM PHOSPHATE\CHOLECALCIFEROL\CITRIC ACID MONOHYDRAT [Concomitant]
     Active Substance: ASCORBIC ACID\CALCIUM PHOSPHATE\CHOLECALCIFEROL\CITRIC ACID MONOHYDRATE
     Indication: Product used for unknown indication
     Dosage: UNK
     Route: 065
     Dates: start: 20171025
  125. ASCORBIC ACID\CALCIUM PHOSPHATE\CHOLECALCIFEROL\CITRIC ACID MONOHYDRAT [Concomitant]
     Active Substance: ASCORBIC ACID\CALCIUM PHOSPHATE\CHOLECALCIFEROL\CITRIC ACID MONOHYDRATE
     Dosage: UNK (TABLET)
     Route: 048
     Dates: start: 20230508, end: 20230515
  126. NEXIUM [Concomitant]
     Active Substance: ESOMEPRAZOLE MAGNESIUM
     Indication: Product used for unknown indication
     Dosage: UNK
     Route: 065
     Dates: start: 20191230
  127. NEXIUM [Concomitant]
     Active Substance: ESOMEPRAZOLE MAGNESIUM
     Dosage: UNK
     Route: 065
  128. SULTAMICILLIN TOSYLATE [Concomitant]
     Active Substance: SULTAMICILLIN TOSYLATE
     Indication: Product used for unknown indication
     Dosage: UNK
     Route: 065
  129. SULTAMICILLIN TOSYLATE [Concomitant]
     Active Substance: SULTAMICILLIN TOSYLATE
     Indication: Pneumonia
  130. KETAMINE HYDROCHLORIDE [Concomitant]
     Active Substance: KETAMINE HYDROCHLORIDE
     Indication: HER2 positive breast cancer
     Dosage: 250 MG, QD ((MOST RECENT DOSE PRIOR TO AE 09/JUL/2021)
     Route: 065
     Dates: start: 20201028, end: 20210709
  131. KETAMINE HYDROCHLORIDE [Concomitant]
     Active Substance: KETAMINE HYDROCHLORIDE
     Dosage: UNK
     Route: 048
     Dates: start: 20230508, end: 20230515
  132. AMOXICILLIN [Concomitant]
     Active Substance: AMOXICILLIN
     Indication: Pneumonia
     Dosage: UNK
     Route: 065
     Dates: end: 20230515
  133. AMOXICILLIN TRIHYDRATE [Concomitant]
     Active Substance: AMOXICILLIN
     Indication: Pneumonia
     Dosage: UNK
     Route: 048
     Dates: start: 20230508, end: 20230515
  134. KETOPROFEN [Concomitant]
     Active Substance: KETOPROFEN
     Indication: Product used for unknown indication
     Dosage: UNK
     Route: 065
  135. LETROZOLE [Concomitant]
     Active Substance: LETROZOLE
     Indication: HER2 positive breast cancer
     Dosage: 24 MG/KG, QW, (8 MG/KG, ONCE EVERY 3 WK (MOST RECENT DOSE PRIOR TO THE EVENT: 23/JUN/2022)
     Route: 065
     Dates: start: 20170621, end: 20170621
  136. LETROZOLE [Concomitant]
     Active Substance: LETROZOLE
     Indication: Product used for unknown indication
     Dosage: 626.4 MG, QW, (208.8 MG, ONCE EVERY 3 WK)
     Route: 042
     Dates: start: 20200120, end: 20200302
  137. LETROZOLE [Concomitant]
     Active Substance: LETROZOLE
     Dosage: 1800 MG/KG, QW, 600 MG/KG, ONCE EVERY 3 WK (MOST RECENT DOSE PRIOR TO THE EVENT: 23/JUN/2022)
     Route: 065
     Dates: start: 20220623
  138. LETROZOLE [Concomitant]
     Active Substance: LETROZOLE
     Dosage: 24 MG/KG, QW, 8 MG/KG, ONCE EVERY 3 WK (MOST RECENT DOSE PRIOR TO THE EVENT: 23/JUN/2022)
     Route: 065
     Dates: start: 20170712, end: 20171115
  139. LETROZOLE [Concomitant]
     Active Substance: LETROZOLE
     Dosage: 208 MG, (208 MG, ONCE EVERY 3 WK)
     Route: 042
     Dates: start: 20200120, end: 20200302
  140. LETROZOLE [Concomitant]
     Active Substance: LETROZOLE
     Dosage: 237 MG, Q3W
     Route: 042
     Dates: start: 20200323, end: 20201006
  141. LETROZOLE [Concomitant]
     Active Substance: LETROZOLE
     Dosage: 24 MG/KG, QW, 8 MG/KG, ONCE EVERY 3 WK (MOST RECENT DOSE PRIOR TO THE EVENT: 23/JUN/2022)
     Route: 065
     Dates: start: 20180108, end: 20190127

REACTIONS (1)
  - Cataract [Recovered/Resolved]

NARRATIVE: CASE EVENT DATE: 20230511
